FAERS Safety Report 15376858 (Version 2)
Quarter: 2018Q4

REPORT INFORMATION
  Report Type: Report from Study
  Country: PL (occurrence: PL)
  Receive Date: 20180913
  Receipt Date: 20181008
  Transmission Date: 20190204
  Serious: Yes (Other)
  Sender: FDA-Public Use
  Company Number: PL-REGENERON PHARMACEUTICALS, INC.-2018-36958

PATIENT

DRUGS (1)
  1. EYLEA [Suspect]
     Active Substance: AFLIBERCEPT
     Indication: NEOVASCULAR AGE-RELATED MACULAR DEGENERATION
     Dosage: 2 MG, RIGHT EYE, TOTAL IF 14 EYLEA DOSES ,LAST DOSE WAS RECEIVED ON 18-JUL-2018
     Route: 031
     Dates: start: 20160804

REACTIONS (3)
  - Blindness [Recovered/Resolved]
  - Uveitis [Recovering/Resolving]
  - Multiple use of single-use product [Unknown]

NARRATIVE: CASE EVENT DATE: 20180823
